FAERS Safety Report 16475729 (Version 2)
Quarter: 2019Q2

REPORT INFORMATION
  Report Type: Spontaneous
  Country: CH (occurrence: CH)
  Receive Date: 20190625
  Receipt Date: 20190625
  Transmission Date: 20190711
  Serious: Yes (Hospitalization)
  Sender: FDA-Public Use
  Company Number: PHHY2019CH141643

PATIENT
  Age: 6 Month
  Sex: Male
  Weight: 6.8 kg

DRUGS (7)
  1. NOPIL [Interacting]
     Active Substance: SULFAMETHOXAZOLE\TRIMETHOPRIM
     Indication: ANTIBIOTIC PROPHYLAXIS
     Dosage: EVERY 3 DAYS
     Route: 048
     Dates: start: 201902
  2. MODIGRAF [Interacting]
     Active Substance: TACROLIMUS
     Indication: IMMUNOSUPPRESSION
     Dosage: 6 MG, Q12H
     Route: 048
     Dates: start: 201902
  3. VALCYTE [Interacting]
     Active Substance: VALGANCICLOVIR HYDROCHLORIDE
     Indication: ANTIVIRAL PROPHYLAXIS
     Dosage: 80 MG, Q24H
     Route: 048
     Dates: start: 201902
  4. TRILEPTAL [Suspect]
     Active Substance: OXCARBAZEPINE
     Indication: EPILEPSY
     Dosage: 140 MG, Q12H
     Route: 048
     Dates: start: 201902
  5. OMEPRAZOL [Interacting]
     Active Substance: OMEPRAZOLE
     Indication: PROPHYLAXIS AGAINST GASTROINTESTINAL ULCER
     Dosage: 10 MG, Q24H
     Route: 048
     Dates: start: 201902
  6. LEVETIRACETAM DESITIN [Interacting]
     Active Substance: LEVETIRACETAM
     Indication: EPILEPSY
     Dosage: UNK
     Route: 065
  7. CLEXANE [Interacting]
     Active Substance: ENOXAPARIN SODIUM
     Indication: THROMBOSIS PROPHYLAXIS
     Dosage: 6 MG, Q24H
     Route: 058
     Dates: start: 201902, end: 201905

REACTIONS (4)
  - Electrolyte imbalance [Recovered/Resolved]
  - Drug interaction [Recovered/Resolved]
  - Hyperkalaemia [Recovered/Resolved]
  - Hyponatraemia [Recovered/Resolved]

NARRATIVE: CASE EVENT DATE: 20190401
